FAERS Safety Report 6752308-2 (Version None)
Quarter: 2010Q2

REPORT INFORMATION
  Report Type: 
  Country: None (occurrence: None)
  Receive Date: 20100601
  Receipt Date: 20100601
  Transmission Date: 20101027
  Serious: No
  Sender: FDA-Public Use
  Company Number: None

PATIENT
  Age: 34 Year
  Sex: Female
  Weight: 61.2356 kg

DRUGS (1)
  1. YAZ [Suspect]
     Indication: MENSTRUATION IRREGULAR
     Dosage: ONE PILL DAILY PO
     Route: 048
     Dates: start: 20060501, end: 20100519

REACTIONS (1)
  - CERVICITIS HUMAN PAPILLOMA VIRUS [None]
